FAERS Safety Report 7709405-4 (Version None)
Quarter: 2011Q3

REPORT INFORMATION
  Report Type: 
  Country: None (occurrence: None)
  Receive Date: 20110819
  Receipt Date: 20110809
  Transmission Date: 20111222
  Serious: Yes (Death, Hospitalization)
  Sender: FDA-Public Use
  Company Number: DSA_47329_2011

PATIENT
  Sex: Female

DRUGS (1)
  1. BUPROPION HYDROCHLORIDE [Suspect]
     Indication: PRODUCT USED FOR UNKNOWN INDICATION
     Dosage: (18000 MG 1X, NOT THE PRESCRIBED AMOUNT ORAL)
     Route: 048
     Dates: start: 20110730, end: 20110730

REACTIONS (12)
  - BRADYCARDIA [None]
  - RESPIRATORY FAILURE [None]
  - INTENTIONAL OVERDOSE [None]
  - BRAIN OEDEMA [None]
  - DISEASE RECURRENCE [None]
  - HYPERTHERMIA [None]
  - HYPERGLYCAEMIA [None]
  - VENTRICULAR FLUTTER [None]
  - ELECTROCARDIOGRAM QRS COMPLEX PROLONGED [None]
  - NEURON-SPECIFIC ENOLASE INCREASED [None]
  - SUICIDE ATTEMPT [None]
  - CONVULSION [None]
